FAERS Safety Report 21642772 (Version 2)
Quarter: 2025Q2

REPORT INFORMATION
  Report Type: Spontaneous
  Country: US (occurrence: US)
  Receive Date: 20221125
  Receipt Date: 20250621
  Transmission Date: 20250716
  Serious: No
  Sender: SANOFI AVENTIS
  Company Number: US-SA-SAC20221123001434

PATIENT
  Age: 20 Year
  Sex: Female
  Weight: 58.9 kg

DRUGS (1)
  1. DUPIXENT [Suspect]
     Active Substance: DUPILUMAB
     Indication: Dermatitis atopic
     Dosage: 300 MG, QOW
     Route: 058

REACTIONS (3)
  - Urticaria [Not Recovered/Not Resolved]
  - Rebound atopic dermatitis [Unknown]
  - Product dose omission issue [Unknown]
